FAERS Safety Report 4757931-2 (Version None)
Quarter: 2005Q3

REPORT INFORMATION
  Report Type: 
  Country: None (occurrence: None)
  Receive Date: 20050831
  Receipt Date: 20050812
  Transmission Date: 20060218
  Serious: Yes (Other)
  Sender: FDA-Public Use
  Company Number: GB-ABBOTT-05P-167-0308252-00

PATIENT
  Sex: Female

DRUGS (12)
  1. GOPTEN [Suspect]
     Indication: DRUG USE FOR UNKNOWN INDICATION
     Route: 048
     Dates: start: 20050729, end: 20050812
  2. ALBUTEROL SULFATE HFA [Concomitant]
     Indication: CHRONIC OBSTRUCTIVE PULMONARY DISEASE
     Route: 055
  3. BECLOMETHASONE DIPROPIONATE [Concomitant]
     Indication: CHRONIC OBSTRUCTIVE PULMONARY DISEASE
     Dosage: 100 UG
     Route: 055
  4. SALBUTAMOL TABS XL [Concomitant]
     Indication: CHRONIC OBSTRUCTIVE PULMONARY DISEASE
     Route: 048
  5. LORAXEPAM [Concomitant]
     Indication: ANXIETY
     Route: 065
  6. FUROSEMIDE [Concomitant]
     Indication: HYPERTENSION
     Route: 048
  7. PARACETAMOL [Concomitant]
     Indication: DRUG USE FOR UNKNOWN INDICATION
     Route: 048
  8. LANSOPRAZOLE [Concomitant]
     Indication: GASTROOESOPHAGEAL REFLUX DISEASE
     Route: 048
     Dates: start: 20050808
  9. FERROUS FUMARATE [Concomitant]
     Indication: ANAEMIA
     Route: 048
     Dates: start: 20050808
  10. HYDROXY CO BUTAMINE [Concomitant]
     Indication: ANAEMIA
     Route: 030
  11. HEPARIN-FRACTION, SODIUM SALT [Concomitant]
     Indication: THROMBOSIS PROPHYLAXIS
     Dates: start: 20050729, end: 20050815
  12. CORUMOL EAR DROPS [Concomitant]
     Indication: DRUG USE FOR UNKNOWN INDICATION
     Route: 001
     Dates: start: 20050806, end: 20050815

REACTIONS (3)
  - BLOOD UREA INCREASED [None]
  - OVERDOSE [None]
  - PROTEIN TOTAL DECREASED [None]
